FAERS Safety Report 9054546 (Version 1)
Quarter: 2013Q1

REPORT INFORMATION
  Report Type: Report from Study
  Country: FR (occurrence: FR)
  Receive Date: 20130208
  Receipt Date: 20130208
  Transmission Date: 20140127
  Serious: Yes (Death)
  Sender: FDA-Public Use
  Company Number: FR-BRISTOL-MYERS SQUIBB COMPANY-17348426

PATIENT
  Age: 73 Year
  Sex: Male
  Weight: 73 kg

DRUGS (2)
  1. ERBITUX [Suspect]
     Indication: HEAD AND NECK CANCER
     Dosage: ONCE
     Route: 042
     Dates: start: 20121123, end: 20121123
  2. CISPLATIN [Suspect]
     Indication: HEAD AND NECK CANCER
     Dosage: ONCE
     Route: 042
     Dates: start: 20121123, end: 20121123

REACTIONS (1)
  - Renal failure acute [Fatal]
